FAERS Safety Report 8471846-8 (Version None)
Quarter: 2012Q2

REPORT INFORMATION
  Report Type: 
  Country: None (occurrence: None)
  Receive Date: 20120323
  Receipt Date: 20111213
  Transmission Date: 20120825
  Serious: Yes (Hospitalization, Other)
  Sender: FDA-Public Use
  Company Number: 163-21880-11100267

PATIENT
  Age: 59 Year
  Sex: Female

DRUGS (12)
  1. PROTONIX [Concomitant]
  2. TEGRETOL [Concomitant]
  3. RISPERDAL [Concomitant]
  4. CALCIUM CARBONATE [Concomitant]
  5. DETROL [Concomitant]
  6. VICODIN [Concomitant]
  7. MEGACE [Concomitant]
  8. KEFLEX [Concomitant]
  9. LANTUS [Concomitant]
  10. REVLIMID [Suspect]
     Indication: MYELOFIBROSIS
     Dosage: 5 MG, 1 IN 1 D, PO
     Route: 048
     Dates: start: 20110801
  11. FOLIC ACID [Concomitant]
  12. ARTANE [Concomitant]

REACTIONS (7)
  - DYSPNOEA [None]
  - BONE MARROW FAILURE [None]
  - THROMBOCYTOPENIA [None]
  - ANAEMIA [None]
  - MYELOFIBROSIS [None]
  - PNEUMONIA [None]
  - DISEASE PROGRESSION [None]
